FAERS Safety Report 25833354 (Version 1)
Quarter: 2025Q3

REPORT INFORMATION
  Report Type: Report from Study
  Country: EU (occurrence: EU)
  Receive Date: 20250922
  Receipt Date: 20250922
  Transmission Date: 20251021
  Serious: Yes (Death, Hospitalization, Other)
  Sender: PFIZER
  Company Number: EU-MYLANLABS-2022M1084015

PATIENT
  Sex: Female

DRUGS (32)
  1. METHOTREXATE SODIUM [Suspect]
     Active Substance: METHOTREXATE SODIUM
     Indication: Rheumatoid arthritis
     Dosage: 15 MG, WEEKLY
     Dates: end: 202405
  2. ERELZI [Suspect]
     Active Substance: ETANERCEPT-SZZS
     Indication: Rheumatoid arthritis
     Dosage: 50 MG/EVERY 7 DAYS
     Route: 065
     Dates: start: 202206
  3. CHOLECALCIFEROL [Concomitant]
     Active Substance: CHOLECALCIFEROL
     Route: 065
  4. XARELTO [Concomitant]
     Active Substance: RIVAROXABAN
     Route: 065
  5. XARELTO [Concomitant]
     Active Substance: RIVAROXABAN
     Route: 065
  6. PANTOPRAZOLE [Concomitant]
     Active Substance: PANTOPRAZOLE
     Route: 065
  7. CANDESARTAN CILEXETIL\HYDROCHLOROTHIAZIDE [Concomitant]
     Active Substance: CANDESARTAN CILEXETIL\HYDROCHLOROTHIAZIDE
     Route: 065
  8. BISOPROLOL [Concomitant]
     Active Substance: BISOPROLOL
     Route: 065
  9. BISOPROLOL [Concomitant]
     Active Substance: BISOPROLOL
     Route: 065
  10. QUETIAPINE [Concomitant]
     Active Substance: QUETIAPINE
     Route: 065
  11. QUETIAPINE [Concomitant]
     Active Substance: QUETIAPINE
     Route: 065
  12. FOLIC ACID [Concomitant]
     Active Substance: FOLIC ACID
     Route: 065
  13. MIRTAZAPINE [Concomitant]
     Active Substance: MIRTAZAPINE
     Route: 065
  14. SCHWEDENBITTER [ALOE FEROX GUM;ALOE VERA GUM;CAMPHOR;COMMIPHORA MYRRHA [Concomitant]
     Route: 065
  15. AMLODIPINE [Concomitant]
     Active Substance: AMLODIPINE BESYLATE
     Route: 065
  16. CARBIMAZOLE [Concomitant]
     Active Substance: CARBIMAZOLE
     Route: 065
  17. MELATONIN [Concomitant]
     Active Substance: MELATONIN
     Route: 065
  18. LACTULOSE [Concomitant]
     Active Substance: LACTULOSE
     Route: 065
  19. MOVICOL [Concomitant]
     Active Substance: POLYETHYLENE GLYCOL 3350\POTASSIUM CHLORIDE\SODIUM BICARBONATE\SODIUM CHLORIDE
  20. CANDESARTAN CILEXETIL\HYDROCHLOROTHIAZIDE [Concomitant]
     Active Substance: CANDESARTAN CILEXETIL\HYDROCHLOROTHIAZIDE
  21. JARDIANCE [Concomitant]
     Active Substance: EMPAGLIFLOZIN
  22. TORSEMIDE [Concomitant]
     Active Substance: TORSEMIDE
  23. HYDROMORPHONE [Concomitant]
     Active Substance: HYDROMORPHONE
  24. METAMIZOLE [Concomitant]
     Active Substance: METAMIZOLE
  25. NEURALGIN [GABAPENTIN] [Concomitant]
  26. ALENDRONIC ACID [Concomitant]
     Active Substance: ALENDRONIC ACID
     Dosage: 70 MG, QW
  27. PREDNISOLONE [Concomitant]
     Active Substance: PREDNISOLONE
  28. SPIRO [Concomitant]
  29. ALLOPURINOL [Concomitant]
     Active Substance: ALLOPURINOL
  30. FERROUS GLUCONATE [Concomitant]
     Active Substance: FERROUS GLUCONATE
  31. VIGANTOL [COLECALCIFEROL-CHOLESTERIN] [Concomitant]
  32. DIGITOXIN [Concomitant]
     Active Substance: DIGITOXIN

REACTIONS (17)
  - Cardiorenal syndrome [Fatal]
  - Cardiac failure [Fatal]
  - Klebsiella bacteraemia [Recovered/Resolved]
  - Cardiac failure acute [Recovered/Resolved]
  - Atrial fibrillation [Recovered/Resolved]
  - Sciatica [Recovered/Resolved]
  - Back pain [Not Recovered/Not Resolved]
  - Cardiac failure [Recovered/Resolved]
  - Cardiac failure acute [Recovered/Resolved]
  - Bradyarrhythmia [Recovered/Resolved]
  - Tuberculosis [Unknown]
  - Pancytopenia [Recovered/Resolved]
  - Dyspnoea exertional [Not Recovered/Not Resolved]
  - Cardiac discomfort [Recovered/Resolved]
  - Osteoporosis [Not Recovered/Not Resolved]
  - Sleep disorder [Not Recovered/Not Resolved]
  - Iron deficiency anaemia [Not Recovered/Not Resolved]

NARRATIVE: CASE EVENT DATE: 20200101
